FAERS Safety Report 15130521 (Version 1)
Quarter: 2018Q3

REPORT INFORMATION
  Report Type: Spontaneous
  Country: US (occurrence: US)
  Receive Date: 20180711
  Receipt Date: 20180711
  Transmission Date: 20181010
  Serious: No
  Sender: FDA-Public Use
  Company Number: US-MYLANLABS-2018M1047477

PATIENT
  Sex: Female
  Weight: 55 kg

DRUGS (2)
  1. LIDOCAINE PATCH [Suspect]
     Active Substance: LIDOCAINE
     Indication: MYALGIA
  2. LIDOCAINE PATCH [Suspect]
     Active Substance: LIDOCAINE
     Indication: IRRITABLE BOWEL SYNDROME
     Dosage: UNK
     Route: 003

REACTIONS (3)
  - Product adhesion issue [Unknown]
  - Drug ineffective for unapproved indication [Unknown]
  - Product quality issue [Unknown]
